FAERS Safety Report 4662056-0 (Version None)
Quarter: 2005Q2

REPORT INFORMATION
  Report Type: 
  Country: None (occurrence: None)
  Receive Date: 20050512
  Receipt Date: 20050512
  Transmission Date: 20051028
  Serious: Yes (Disabling, Other)
  Sender: FDA-Public Use
  Company Number: None

PATIENT
  Age: 38 Year
  Sex: Female
  Weight: 80.7403 kg

DRUGS (3)
  1. DEPO-PROVERA [Suspect]
     Indication: MENOPAUSE
     Dosage: EVERY 12WKS,  SHOT INTRAMUSCULAR
     Route: 030
     Dates: start: 20010525, end: 20020225
  2. DEPO-PROVERA [Suspect]
     Indication: MENORRHAGIA
     Dosage: EVERY 12WKS,  SHOT INTRAMUSCULAR
     Route: 030
     Dates: start: 20010525, end: 20020225
  3. DEPO-PROVERA [Suspect]
     Indication: MENSTRUATION IRREGULAR
     Dosage: EVERY 12WKS,  SHOT INTRAMUSCULAR
     Route: 030
     Dates: start: 20010525, end: 20020225

REACTIONS (9)
  - ACNE [None]
  - ANXIETY [None]
  - IMPAIRED WORK ABILITY [None]
  - LOSS OF LIBIDO [None]
  - MAJOR DEPRESSION [None]
  - MARITAL PROBLEM [None]
  - PANIC ATTACK [None]
  - SUICIDAL IDEATION [None]
  - WEIGHT INCREASED [None]
